FAERS Safety Report 6452886-7 (Version None)
Quarter: 2009Q4

REPORT INFORMATION
  Report Type: 
  Country: None (occurrence: None)
  Receive Date: 20091124
  Receipt Date: 20081112
  Transmission Date: 20100525
  Serious: Yes (Other)
  Sender: FDA-Public Use
  Company Number: US-ABBOTT-08P-163-0473166-00

PATIENT
  Age: 40 Year
  Sex: Male

DRUGS (2)
  1. TRICOR [Suspect]
     Indication: DYSLIPIDAEMIA
     Dates: start: 20080312, end: 20080405
  2. PRITOR [Concomitant]
     Indication: DRUG USE FOR UNKNOWN INDICATION
     Dosage: 80/12.5MG DAILY

REACTIONS (10)
  - ASTHENIA [None]
  - COUGH [None]
  - DIZZINESS [None]
  - DYSPNOEA [None]
  - FATIGUE [None]
  - LABORATORY TEST ABNORMAL [None]
  - PROTEINURIA [None]
  - PYREXIA [None]
  - RENAL DISORDER [None]
  - RHABDOMYOLYSIS [None]
